FAERS Safety Report 15149806 (Version 1)
Quarter: 2018Q3

REPORT INFORMATION
  Report Type: Spontaneous
  Country: CN (occurrence: CN)
  Receive Date: 20180716
  Receipt Date: 20180716
  Transmission Date: 20181010
  Serious: Yes (Other)
  Sender: FDA-Public Use
  Company Number: CN-NAPPMUNDI-GBR-2018-0057435

PATIENT
  Age: 79 Year
  Sex: Male
  Weight: 50 kg

DRUGS (3)
  1. MS CONTIN [Suspect]
     Active Substance: MORPHINE SULFATE
     Dosage: 10 MG, BID
     Route: 048
     Dates: start: 20180419, end: 20180420
  2. MS CONTIN [Suspect]
     Active Substance: MORPHINE SULFATE
     Indication: ANALGESIC THERAPY
     Dosage: 10 MG, BID
     Route: 048
     Dates: start: 20180422, end: 20180422
  3. TRAMADOL HYDROCHLORIDE. [Suspect]
     Active Substance: TRAMADOL HYDROCHLORIDE
     Indication: ANALGESIC THERAPY
     Dosage: 1 DF, BID
     Route: 048
     Dates: start: 20180421, end: 20180421

REACTIONS (7)
  - Mydriasis [Recovering/Resolving]
  - Lethargy [Recovering/Resolving]
  - Slow response to stimuli [Recovering/Resolving]
  - Somnolence [Recovering/Resolving]
  - Drug administration error [Recovering/Resolving]
  - Pupillary reflex impaired [Recovering/Resolving]
  - Drug ineffective [Recovering/Resolving]

NARRATIVE: CASE EVENT DATE: 20180420
